FAERS Safety Report 5079679-X (Version None)
Quarter: 2006Q3

REPORT INFORMATION
  Report Type: 
  Country: None (occurrence: None)
  Receive Date: 20060808
  Receipt Date: 20060719
  Transmission Date: 20061208
  Serious: Yes (Death, Hospitalization, Other)
  Sender: FDA-Public Use
  Company Number: US200607003573

PATIENT
  Sex: Female

DRUGS (2)
  1. FORTEO [Suspect]
     Dates: start: 20040101, end: 20050801
  2. FORTEO [Concomitant]

REACTIONS (4)
  - FALL [None]
  - HIP FRACTURE [None]
  - INFECTION [None]
  - WRIST FRACTURE [None]
